FAERS Safety Report 4876959-5 (Version None)
Quarter: 2006Q1

REPORT INFORMATION
  Report Type: 
  Country: None (occurrence: None)
  Receive Date: 20060110
  Receipt Date: 20051207
  Transmission Date: 20060701
  Serious: Yes (Death, Hospitalization)
  Sender: FDA-Public Use
  Company Number: IL-NOVOPROD-249187

PATIENT
  Age: 73 Year
  Sex: Female
  Weight: 48 kg

DRUGS (8)
  1. LEVEMIR [Suspect]
     Indication: INSULIN-REQUIRING TYPE II DIABETES MELLITUS
     Dosage: 20 IU, QD
     Route: 058
     Dates: start: 20050830, end: 20051108
  2. CILAZAPRIL [Concomitant]
     Dosage: 5 MG, QD
     Dates: start: 19990101
  3. AMLODIPINE [Concomitant]
     Dosage: 5 MG, QD
     Dates: start: 19990101
  4. ATENOLOL [Concomitant]
     Dosage: 25 MG, QD
     Dates: start: 19990101
  5. SIMVASTATIN [Concomitant]
     Dosage: 20 MG, QD
     Dates: start: 20020101
  6. AMIODARONE [Concomitant]
     Dosage: 200 MG, QD
     Dates: start: 20040101
  7. ISOTARD [Concomitant]
     Dosage: 40 MG, BID
     Dates: start: 20050101
  8. HYDROCHLOROTHIAZIDE [Concomitant]
     Dosage: 12.5 MG, QD
     Dates: start: 19990101

REACTIONS (2)
  - LOSS OF CONSCIOUSNESS [None]
  - SUDDEN DEATH [None]
